FAERS Safety Report 11651771 (Version 4)
Quarter: 2015Q4

REPORT INFORMATION
  Report Type: Report from Study
  Country: PT (occurrence: PT)
  Receive Date: 20151022
  Receipt Date: 20151127
  Transmission Date: 20160304
  Serious: Yes (Other)
  Sender: FDA-Public Use
  Company Number: PT-ABBVIE-15K-130-1484370-00

PATIENT
  Age: 39 Year
  Sex: Female

DRUGS (2)
  1. INDERAL [Concomitant]
     Active Substance: PROPRANOLOL HYDROCHLORIDE
     Indication: BRONCHOSPASM
     Route: 048
  2. HUMIRA [Suspect]
     Active Substance: ADALIMUMAB
     Indication: SPONDYLITIS
     Route: 058
     Dates: start: 20150110

REACTIONS (8)
  - Purulent discharge [Not Recovered/Not Resolved]
  - Suture related complication [Not Recovered/Not Resolved]
  - Ingrowing nail [Not Recovered/Not Resolved]
  - Skin haemorrhage [Unknown]
  - Skin exfoliation [Recovering/Resolving]
  - Blister [Recovered/Resolved]
  - Postoperative wound infection [Recovered/Resolved]
  - Nail hypertrophy [Unknown]

NARRATIVE: CASE EVENT DATE: 2015
